FAERS Safety Report 6724881-1 (Version None)
Quarter: 2010Q2

REPORT INFORMATION
  Report Type: 
  Country: None (occurrence: None)
  Receive Date: 20100513
  Receipt Date: 20100513
  Transmission Date: 20101027
  Serious: Yes (Death)
  Sender: FDA-Public Use
  Company Number: None

PATIENT
  Age: 71 Year
  Sex: Male

DRUGS (10)
  1. REVLIMID [Suspect]
     Indication: MYELODYSPLASTIC SYNDROME
     Dosage: REVLIMID 10MG DAILY ORALLY
     Route: 048
     Dates: start: 20091203, end: 20100107
  2. REVLIMID [Suspect]
     Indication: MYELOFIBROSIS
     Dosage: REVLIMID 10MG DAILY ORALLY
     Route: 048
     Dates: start: 20091203, end: 20100107
  3. APAP #3 [Concomitant]
  4. AMANTADINE HCL [Concomitant]
  5. ALLOPURINOL [Concomitant]
  6. OMEPRAZOLE [Concomitant]
  7. SIMVASTATIN [Concomitant]
  8. LEVOTHROID [Concomitant]
  9. ROPINOROLE [Concomitant]
  10. CARBIDOPA-LEVODOPA [Concomitant]

REACTIONS (2)
  - FULL BLOOD COUNT DECREASED [None]
  - PERFORMANCE STATUS DECREASED [None]
